FAERS Safety Report 14614027 (Version 1)
Quarter: 2018Q1

REPORT INFORMATION
  Report Type: Spontaneous
  Country: CH (occurrence: CH)
  Receive Date: 20180308
  Receipt Date: 20180308
  Transmission Date: 20180509
  Serious: Yes (Life-Threatening, Hospitalization)
  Sender: FDA-Public Use
  Company Number: CH-BAYER-2018-039498

PATIENT
  Age: 72 Year
  Sex: Female

DRUGS (14)
  1. ASPIRIN CARDIO 100 MG [Suspect]
     Active Substance: ASPIRIN
     Dosage: 100 MG, QD
     Route: 048
     Dates: end: 20180112
  2. INVOKANA [Suspect]
     Active Substance: CANAGLIFLOZIN
     Indication: TYPE 2 DIABETES MELLITUS
     Dosage: 1 DF, UNK
     Route: 048
     Dates: start: 2018, end: 2018
  3. AMLODIPINE BESILATE [Suspect]
     Active Substance: AMLODIPINE BESYLATE
     Indication: HYPERTENSION
     Dosage: 10 MG, QD
     Route: 048
     Dates: start: 20180212
  4. CHONDROSULF [Concomitant]
     Active Substance: CHONDROITIN SULFATE (CHICKEN)
     Dosage: 800 MG, QD
     Dates: end: 20180207
  5. BELOC ZOK [Interacting]
     Active Substance: METOPROLOL SUCCINATE
     Indication: HYPERTENSION
     Dosage: 100 MG, QD
     Route: 048
     Dates: end: 20180212
  6. TARDYFERON [Concomitant]
     Active Substance: FERROUS SULFATE
     Dosage: 1 DF, QD
     Dates: end: 20180207
  7. METFIN [Suspect]
     Active Substance: METFORMIN HYDROCHLORIDE
     Indication: TYPE 2 DIABETES MELLITUS
     Dosage: 1000 MG, BID
     Route: 048
     Dates: end: 20180207
  8. FRAGMIN [Interacting]
     Active Substance: DALTEPARIN SODIUM
     Indication: PROPHYLAXIS
     Dosage: 5000 IU, QD
     Route: 058
     Dates: start: 20180207, end: 20180212
  9. TOREM [Suspect]
     Active Substance: TORSEMIDE
     Indication: HYPERTENSION
     Dosage: 7.5 MG, UNK
     Route: 048
     Dates: end: 20180212
  10. PADMED CIRCOSAN [Concomitant]
     Active Substance: CALCIUM SULFATE\HERBALS
     Dates: end: 20180207
  11. XENALON [Concomitant]
     Dosage: 25 MG, QD
     Dates: end: 20180207
  12. ZESTRIL [Suspect]
     Active Substance: LISINOPRIL
     Indication: HYPERTENSION
     Dosage: 10 MG, QD
     Route: 048
     Dates: end: 20180212
  13. PARAGOL [Concomitant]
     Active Substance: MINERAL OIL\PHENOLPHTHALEIN
     Dates: end: 20180207
  14. VI-DE 3 [Concomitant]
     Active Substance: CHOLECALCIFEROL
     Dosage: 4500 IU, Q1MON

REACTIONS (6)
  - Haemorrhagic erosive gastritis [Recovered/Resolved]
  - Blood pressure decreased [Recovered/Resolved]
  - Gastric ulcer [Unknown]
  - Diabetic ketoacidosis [Recovered/Resolved]
  - Haemorrhagic anaemia [Recovering/Resolving]
  - Melaena [Recovered/Resolved]

NARRATIVE: CASE EVENT DATE: 201802
